FAERS Safety Report 17801580 (Version 1)
Quarter: 2020Q2

REPORT INFORMATION
  Report Type: Spontaneous
  Country: MY (occurrence: MY)
  Receive Date: 20200519
  Receipt Date: 20200519
  Transmission Date: 20200714
  Serious: Yes (Other)
  Sender: FDA-Public Use
  Company Number: NVSC2020MY134301

PATIENT
  Age: 18 Year
  Sex: Male

DRUGS (1)
  1. CEFAZOLIN SANDOZ [Suspect]
     Active Substance: CEFAZOLIN
     Indication: INTERVERTEBRAL DISCITIS
     Dosage: 1 DF, Q8H (8 HOURS)
     Route: 042

REACTIONS (2)
  - Cytopenia [Recovered/Resolved]
  - Rash [Recovered/Resolved]
